FAERS Safety Report 24954748 (Version 2)
Quarter: 2025Q2

REPORT INFORMATION
  Report Type: Spontaneous
  Country: US (occurrence: US)
  Receive Date: 20250211
  Receipt Date: 20250418
  Transmission Date: 20250716
  Serious: Yes (Other)
  Sender: NOVARTIS
  Company Number: US-002147023-NVSC2025US019878

PATIENT
  Sex: Female

DRUGS (2)
  1. CANAKINUMAB [Suspect]
     Active Substance: CANAKINUMAB
     Indication: Product used for unknown indication
     Route: 065
  2. EMAPALUMAB [Suspect]
     Active Substance: EMAPALUMAB
     Indication: Product used for unknown indication
     Route: 065

REACTIONS (7)
  - Pleocytosis [Unknown]
  - Neutropenia [Unknown]
  - Mental status changes [Unknown]
  - Encephalitis [Unknown]
  - Pyrexia [Unknown]
  - Tachycardia [Unknown]
  - Protein total increased [Unknown]
